FAERS Safety Report 4510348-8 (Version None)
Quarter: 2004Q4

REPORT INFORMATION
  Report Type: 
  Country: None (occurrence: None)
  Receive Date: 20041122
  Receipt Date: 20041118
  Transmission Date: 20050328
  Serious: Yes (Death, Hospitalization, Other)
  Sender: FDA-Public Use
  Company Number: 200411696BWH

PATIENT
  Age: 84 Year
  Sex: Female

DRUGS (1)
  1. CIPRO [Suspect]
     Indication: PYREXIA
     Dosage: ORAL
     Route: 048
     Dates: start: 20011219, end: 20011226

REACTIONS (19)
  - ABNORMAL BEHAVIOUR [None]
  - ACIDOSIS [None]
  - ASTHENIA [None]
  - ATRIAL FLUTTER [None]
  - CARDIAC FAILURE CONGESTIVE [None]
  - CHRONIC OBSTRUCTIVE AIRWAYS DISEASE [None]
  - GASTRIC DISORDER [None]
  - HYPERSENSITIVITY [None]
  - HYPERSOMNIA [None]
  - IMMUNOSUPPRESSION [None]
  - LUNG NEOPLASM MALIGNANT [None]
  - MARKEDLY REDUCED DIETARY INTAKE [None]
  - MEMORY IMPAIRMENT [None]
  - MENTAL STATUS CHANGES [None]
  - PNEUMONIA [None]
  - PYREXIA [None]
  - RESPIRATORY FAILURE [None]
  - THERAPY NON-RESPONDER [None]
  - TREMOR [None]
